FAERS Safety Report 21250341 (Version 6)
Quarter: 2022Q3

REPORT INFORMATION
  Report Type: Spontaneous
  Country: US (occurrence: US)
  Receive Date: 20220824
  Receipt Date: 20220907
  Transmission Date: 20221026
  Serious: No
  Sender: FDA-Public Use
  Company Number: US-Dermavant-000081

PATIENT
  Age: 61 Year
  Sex: Female

DRUGS (2)
  1. TAPINAROF [Suspect]
     Active Substance: TAPINAROF
     Indication: Psoriasis
     Dosage: ONE APPLICATION (1%, 60 G)
  2. Unspecified immunotherapy and cancer medications [Concomitant]

REACTIONS (1)
  - Therapeutic product effect incomplete [Unknown]
